FAERS Safety Report 12364709 (Version 1)
Quarter: 2016Q2

REPORT INFORMATION
  Report Type: Not Available
  Country: IT (occurrence: IT)
  Receive Date: 20160512
  Receipt Date: 20160512
  Transmission Date: 20160815
  Serious: Yes (Life-Threatening, Hospitalization)
  Sender: FDA-Public Use
  Company Number: IT-ANIPHARMA-2016-IT-000003

PATIENT
  Age: 65 Year
  Sex: Female

DRUGS (1)
  1. IBUPROFEN (NON-SPECIFIC) [Suspect]
     Active Substance: IBUPROFEN
     Dosage: 600 MG THREE TIMES DAILY
     Route: 065

REACTIONS (3)
  - Gastritis haemorrhagic [Unknown]
  - Large intestinal ulcer [Unknown]
  - Pulmonary embolism [Unknown]
